FAERS Safety Report 4480063-8 (Version None)
Quarter: 2004Q4

REPORT INFORMATION
  Report Type: 
  Country: None (occurrence: None)
  Receive Date: 20041018
  Receipt Date: 20041004
  Transmission Date: 20050328
  Serious: Yes (Other)
  Sender: FDA-Public Use
  Company Number: 2004074866

PATIENT
  Age: 29 Year
  Sex: Female
  Weight: 213 kg

DRUGS (1)
  1. ZIPRASIDONE (CAPS) (ZIPRASIDONE) [Suspect]
     Indication: SCHIZOPHRENIA
     Dosage: 40 MG (1 IN 1 D), ORAL
     Route: 048
     Dates: start: 20040929, end: 20040930

REACTIONS (2)
  - DRUG HYPERSENSITIVITY [None]
  - PANIC ATTACK [None]
